FAERS Safety Report 5142990-8 (Version None)
Quarter: 2006Q4

REPORT INFORMATION
  Report Type: 
  Country: None (occurrence: None)
  Receive Date: 20061031
  Receipt Date: 20061031
  Transmission Date: 20070319
  Serious: Yes (Hospitalization)
  Sender: FDA-Public Use
  Company Number: None

PATIENT
  Sex: Male

DRUGS (2)
  1. CETUXIMAB [Suspect]
     Indication: NEOPLASM MALIGNANT
     Dosage: 410 MG WEEKLY IV
     Route: 042
     Dates: start: 20060428, end: 20061016
  2. PACLITAXEL [Suspect]
     Indication: NEOPLASM MALIGNANT
     Dosage: 66.5 MG 8 WEEKS IV
     Route: 042
     Dates: start: 20030530, end: 20060717

REACTIONS (9)
  - CLOSTRIDIAL INFECTION [None]
  - DEHYDRATION [None]
  - DIARRHOEA [None]
  - DYSPNOEA [None]
  - FATIGUE [None]
  - HYDRONEPHROSIS [None]
  - HYPERGLYCAEMIA [None]
  - RENAL FAILURE ACUTE [None]
  - WHITE BLOOD CELL COUNT INCREASED [None]
